FAERS Safety Report 5508005-4 (Version None)
Quarter: 2007Q4

REPORT INFORMATION
  Report Type: 
  Country: None (occurrence: None)
  Receive Date: 20071106
  Receipt Date: 20071029
  Transmission Date: 20080405
  Serious: Yes (Hospitalization)
  Sender: FDA-Public Use
  Company Number: US-AMGEN-STX250151

PATIENT
  Sex: Female

DRUGS (2)
  1. ENBREL [Suspect]
     Indication: RHEUMATOID ARTHRITIS
     Route: 058
     Dates: start: 20070415
  2. LEFLUNOMIDE [Concomitant]
     Route: 065
     Dates: start: 20050101

REACTIONS (4)
  - CONTUSION [None]
  - DRUG HYPERSENSITIVITY [None]
  - MYOCARDIAL INFARCTION [None]
  - VOMITING [None]
